FAERS Safety Report 5155363-9 (Version None)
Quarter: 2006Q4

REPORT INFORMATION
  Report Type: 
  Country: None (occurrence: None)
  Receive Date: 20061114
  Receipt Date: 20061103
  Transmission Date: 20070319
  Serious: Yes (Life-Threatening, Hospitalization)
  Sender: FDA-Public Use
  Company Number: MYVW-PR-0606S-0034

PATIENT
  Age: 50 Year
  Sex: Male
  Weight: 94.8018 kg

DRUGS (23)
  1. MYOVIEW [Suspect]
     Indication: HAEMOPTYSIS
  2. TECHNETUM (TC99M) GENERATOR (SODIUM PERTECHNETATE TC99M) [Concomitant]
  3. ACETAMINOPHEN AND CODEINE PHOSPHATE [Concomitant]
  4. ALBUTEROL SPIROS [Concomitant]
  5. AMITRIPTYLINE HCL [Concomitant]
  6. ASPIRIN [Concomitant]
  7. DIAZEPAM [Concomitant]
  8. DM 10/GUIFENESEN [Concomitant]
  9. GABAPENTIN [Concomitant]
  10. IBUPROFEN [Concomitant]
  11. LORATADINE [Concomitant]
  12. METOPROLOL TARTRATE [Concomitant]
  13. MORPHINE [Concomitant]
  14. OMEPRAZOLE [Concomitant]
  15. OXYCODONE/ACETAMINOPHEN [Concomitant]
  16. QUETIAPINE FUMARATE [Concomitant]
  17. RANITIDINE [Concomitant]
  18. SILDENAFIL CITRATE [Concomitant]
  19. SIMVASTATIN [Concomitant]
  20. TRAMADOL HCL [Concomitant]
  21. COUMADIN [Concomitant]
  22. XENON (133 XE) [Concomitant]
  23. TC99M MACROAGGREGATED ALBUMIN (MAA) [Concomitant]

REACTIONS (10)
  - DIARRHOEA [None]
  - FAECES DISCOLOURED [None]
  - GASTROINTESTINAL HAEMORRHAGE [None]
  - HAEMATEMESIS [None]
  - HAEMOPTYSIS [None]
  - HEPATIC TRAUMA [None]
  - INTESTINAL PERFORATION [None]
  - PNEUMONIA [None]
  - TUBERCULOSIS [None]
  - VOMITING [None]
